FAERS Safety Report 9886104 (Version 2)
Quarter: 2014Q1

REPORT INFORMATION
  Report Type: Spontaneous
  Country: US (occurrence: US)
  Receive Date: 20140210
  Receipt Date: 20140310
  Transmission Date: 20141002
  Serious: Yes (Hospitalization)
  Sender: FDA-Public Use
  Company Number: US-JNJFOC-20140117285

PATIENT
  Age: 77 Year
  Sex: Female
  Weight: 84 kg

DRUGS (9)
  1. LEVOFLOXACIN [Suspect]
     Indication: DIVERTICULITIS
     Route: 042
  2. LEVOFLOXACIN [Suspect]
     Indication: DIVERTICULITIS
     Route: 042
  3. METRONIDAZOLE [Suspect]
     Indication: DIVERTICULITIS
     Route: 042
  4. ALLOPURINOL [Concomitant]
     Route: 048
  5. DILTIAZEM CD [Concomitant]
     Route: 048
  6. FAMOTIDINE [Concomitant]
     Route: 048
  7. FUROSEMIDE [Concomitant]
     Route: 048
  8. LEVOTHYROXINE [Concomitant]
     Route: 048
  9. PAROXETINE [Concomitant]
     Route: 048

REACTIONS (2)
  - Dyskinesia [Recovered/Resolved]
  - Off label use [Unknown]
